FAERS Safety Report 6162778-9 (Version None)
Quarter: 2009Q2

REPORT INFORMATION
  Report Type: 
  Country: None (occurrence: None)
  Receive Date: 20090421
  Receipt Date: 20080707
  Transmission Date: 20091009
  Serious: Yes (Other)
  Sender: FDA-Public Use
  Company Number: US-ASTRAZENECA-2008UW13497

PATIENT
  Age: 15155 Day
  Sex: Male
  Weight: 104.3 kg

DRUGS (2)
  1. METOPROLOL SUCCINATE [Suspect]
     Indication: BLOOD PRESSURE
     Route: 048
     Dates: end: 20080604
  2. XYREM [Suspect]
     Indication: NARCOLEPSY
     Dates: start: 20080429

REACTIONS (1)
  - HEART RATE DECREASED [None]
